FAERS Safety Report 4423168-X (Version None)
Quarter: 2004Q3

REPORT INFORMATION
  Report Type: 
  Country: None (occurrence: None)
  Receive Date: 20040811
  Receipt Date: 20040803
  Transmission Date: 20050211
  Serious: Yes (Other)
  Sender: FDA-Public Use
  Company Number: BR-ROCHE-376513

PATIENT
  Age: 21 Year
  Sex: Male
  Weight: 49 kg

DRUGS (2)
  1. ROACUTAN [Suspect]
     Indication: ACNE
     Route: 048
     Dates: start: 20040115, end: 20040803
  2. UNKNOWN DRUG [Concomitant]
     Dosage: REPORTED AS: UNSPECIFIED MANIPULATED FORMULA.
     Route: 048

REACTIONS (2)
  - FAECES DISCOLOURED [None]
  - HAEMATEMESIS [None]
